FAERS Safety Report 5333614-5 (Version None)
Quarter: 2007Q2

REPORT INFORMATION
  Report Type: 
  Country: None (occurrence: None)
  Receive Date: 20070524
  Receipt Date: 20070518
  Transmission Date: 20071010
  Serious: Yes (Congenital Anomaly, Other)
  Sender: FDA-Public Use
  Company Number: US-MERCK-0704USA05604

PATIENT
  Age: 0 Day
  Sex: Male

DRUGS (2)
  1. SINGULAIR [Suspect]
     Indication: ASTHMA
     Route: 064
  2. VITAMINS (UNSPECIFIED) [Concomitant]
     Indication: PRENATAL CARE
     Route: 064
     Dates: start: 20060801, end: 20070401

REACTIONS (3)
  - DRUG EXPOSURE DURING PREGNANCY [None]
  - POLYDACTYLY [None]
  - PREGNANCY [None]
